FAERS Safety Report 15716548 (Version 16)
Quarter: 2021Q2

REPORT INFORMATION
  Report Type: Spontaneous
  Country: GB (occurrence: GB)
  Receive Date: 20181213
  Receipt Date: 20210528
  Transmission Date: 20210716
  Serious: Yes (Life-Threatening, Hospitalization, Congenital Anomaly, Other)
  Sender: FDA-Public Use
  Company Number: GB-AUROBINDO-AUR-APL-2014-11001

PATIENT
  Age: 1 Year
  Sex: Female
  Weight: 2.27 kg

DRUGS (33)
  1. CODEINE PHOSPHATE [Suspect]
     Active Substance: CODEINE PHOSPHATE
     Indication: PRODUCT USED FOR UNKNOWN INDICATION
  2. COCODAMOL [Suspect]
     Active Substance: ACETAMINOPHEN\CODEINE PHOSPHATE
     Indication: FOETAL EXPOSURE DURING PREGNANCY
     Dosage: ABUSE,OVERDOSE
     Route: 064
  3. COCODAMOL [Suspect]
     Active Substance: ACETAMINOPHEN\CODEINE PHOSPHATE
     Indication: BACK DISORDER
  4. MORPHINE HYDROCHLORIDE [Concomitant]
     Active Substance: MORPHINE HYDROCHLORIDE
     Indication: PRODUCT USED FOR UNKNOWN INDICATION
     Dosage: UNK
     Route: 064
  5. CODEINE PHOSPHATE [Suspect]
     Active Substance: CODEINE PHOSPHATE
     Indication: BACK DISORDER
     Dosage: STAGGERED PARACETAMOL OVERDOSE(UNINTENTIONAL) OVER WEEKS AND DAYS PRIOR TO DELIVERY
     Route: 064
  6. CODEINE PHOSPHATE [Suspect]
     Active Substance: CODEINE PHOSPHATE
     Indication: PELVIC PAIN
  7. CEFRADINE [Concomitant]
     Active Substance: CEPHRADINE
     Indication: PYELONEPHRITIS
     Dosage: UNK
     Route: 064
  8. FLUOXETINE [Concomitant]
     Active Substance: FLUOXETINE HYDROCHLORIDE
     Indication: PRODUCT USED FOR UNKNOWN INDICATION
     Dosage: UNK
     Route: 064
  9. PARACETAMOL TABLET [Suspect]
     Active Substance: ACETAMINOPHEN
     Indication: BACK DISORDER
     Dosage: UNK UNK, FOUR TIMES/DAY
     Route: 064
  10. COCODAMOL [Suspect]
     Active Substance: ACETAMINOPHEN\CODEINE PHOSPHATE
     Indication: FOETAL EXPOSURE DURING PREGNANCY
     Dosage: UNK, ONCE A DAY
     Route: 064
  11. PERFALGAN [Suspect]
     Active Substance: ACETAMINOPHEN
     Dosage: UP TO FOUR TIMES A DAY, PARENT: INDICATION: BACK DISORDER
     Route: 064
  12. PARACETAMOL TABLET [Suspect]
     Active Substance: ACETAMINOPHEN
     Indication: PELVIC PAIN
     Dosage: UNK
     Route: 064
  13. PERFALGAN [Suspect]
     Active Substance: ACETAMINOPHEN
     Indication: FOETAL EXPOSURE DURING PREGNANCY
     Dosage: STAGGERED PARACETAMOL OVERDOSE(UNINTENTIONAL) OVER WEEKS AND DAYS PRIOR TO DELIVERY
     Route: 064
  14. PERFALGAN [Suspect]
     Active Substance: ACETAMINOPHEN
     Dosage: UNK, 4X/DAY (QID)
     Route: 064
  15. PERFALGAN [Suspect]
     Active Substance: ACETAMINOPHEN
     Indication: PYELONEPHRITIS
     Dosage: PARENT: INDICATION: PELVIC PAIN
     Route: 064
  16. CEFRADINE [Concomitant]
     Active Substance: CEPHRADINE
     Dosage: UNK
     Route: 064
  17. PERFALGAN [Suspect]
     Active Substance: ACETAMINOPHEN
     Indication: BACK DISORDER
     Dosage: UNK
     Route: 064
  18. PERFALGAN [Suspect]
     Active Substance: ACETAMINOPHEN
     Indication: PELVIC PAIN
     Dosage: UNK, UP TO FOUR TIMES A DAY
     Route: 064
  19. METRONIDAZOLE. [Concomitant]
     Active Substance: METRONIDAZOLE
     Dosage: UNK
     Route: 064
  20. MORPHINE HYDROCHLORIDE [Concomitant]
     Active Substance: MORPHINE HYDROCHLORIDE
     Route: 064
  21. CODEINE PHOSPHATE [Suspect]
     Active Substance: CODEINE PHOSPHATE
     Indication: FOETAL EXPOSURE DURING PREGNANCY
     Dosage: UNK, FOUR TIMES/DAY
     Route: 064
  22. PARACETAMOL TABLET [Suspect]
     Active Substance: ACETAMINOPHEN
     Dosage: UP TO FOUR TIMES A DAY. 4X/DAY (QID)
     Route: 064
  23. COCODAMOL [Suspect]
     Active Substance: ACETAMINOPHEN\CODEINE PHOSPHATE
     Indication: PELVIC PAIN
     Dosage: UNK, FOUR TIMES/DAY
     Route: 064
  24. CODEINE PHOSPHATE;PARACETAMOL [Suspect]
     Active Substance: ACETAMINOPHEN\CODEINE PHOSPHATE
     Indication: PELVIC PAIN
     Dosage: UP TO FOUR TIMES A DAY. 4X/DAY (QID)
     Route: 064
  25. TYLEX (CODEINE PHOSPHATE/PARACETAMOL) [Suspect]
     Active Substance: ACETAMINOPHEN\CODEINE PHOSPHATE
     Indication: PELVIC PAIN
     Dosage: UNK
     Route: 064
  26. FLUOXETINE [Concomitant]
     Active Substance: FLUOXETINE HYDROCHLORIDE
     Indication: FOETAL EXPOSURE DURING PREGNANCY
     Dosage: UNK
     Route: 064
  27. METRONIDAZOLE. [Concomitant]
     Active Substance: METRONIDAZOLE
     Indication: PYELONEPHRITIS
     Dosage: UNK
     Route: 064
  28. CODEINE PHOSPHATE [Suspect]
     Active Substance: CODEINE PHOSPHATE
     Indication: FOETAL EXPOSURE DURING PREGNANCY
  29. CODEINE PHOSPHATE;PARACETAMOL [Suspect]
     Active Substance: ACETAMINOPHEN\CODEINE PHOSPHATE
     Indication: BACK DISORDER
     Dosage: UNK
     Route: 064
  30. CODEINE PHOSPHATE;PARACETAMOL [Suspect]
     Active Substance: ACETAMINOPHEN\CODEINE PHOSPHATE
     Indication: FOETAL EXPOSURE DURING PREGNANCY
  31. ENOXAPARIN [Concomitant]
     Active Substance: ENOXAPARIN
     Indication: FOETAL EXPOSURE DURING PREGNANCY
     Dosage: UNK
     Route: 064
  32. ENOXAPARIN [Concomitant]
     Active Substance: ENOXAPARIN
     Indication: PRODUCT USED FOR UNKNOWN INDICATION
     Dosage: UNK
     Route: 065
  33. FLUOXETINE [Concomitant]
     Active Substance: FLUOXETINE HYDROCHLORIDE
     Dosage: UNK
     Route: 065

REACTIONS (26)
  - Jaundice [Recovered/Resolved]
  - Foetal arrhythmia [Recovered/Resolved]
  - Developmental delay [Not Recovered/Not Resolved]
  - Aphasia [Unknown]
  - Premature baby [Unknown]
  - Liver function test abnormal [Recovered/Resolved]
  - Gait inability [Unknown]
  - Drug withdrawal syndrome neonatal [Recovered/Resolved]
  - Language disorder [Unknown]
  - Hepatic function abnormal [Recovered/Resolved]
  - Incubator therapy [Unknown]
  - Heart rate irregular [Unknown]
  - Gingival discomfort [Unknown]
  - Respiratory distress [Recovered/Resolved]
  - Foetal exposure during pregnancy [Unknown]
  - Incorrect product administration duration [Unknown]
  - Drug dependence [Recovered/Resolved]
  - Overdose [Unknown]
  - Malaise [Unknown]
  - Foetal monitoring abnormal [Unknown]
  - Dependence [Recovered/Resolved]
  - Low birth weight baby [Unknown]
  - Hepatotoxicity [Recovered/Resolved]
  - Jaundice neonatal [Recovered/Resolved]
  - Tremor [Unknown]
  - Maternal exposure during pregnancy [Unknown]
